FAERS Safety Report 8516477-6 (Version None)
Quarter: 2012Q3

REPORT INFORMATION
  Report Type: 
  Country: None (occurrence: None)
  Receive Date: 20120718
  Receipt Date: 20120716
  Transmission Date: 20120928
  Serious: No
  Sender: FDA-Public Use
  Company Number: US-PFIZER INC-2012171180

PATIENT
  Sex: Female
  Weight: 77 kg

DRUGS (8)
  1. PROTONIX [Suspect]
     Indication: GASTROOESOPHAGEAL REFLUX DISEASE
     Dosage: UNK, 1X/DAY
     Route: 048
     Dates: start: 20100101, end: 20100101
  2. AMBIEN [Concomitant]
     Dosage: UNK
  3. ATIVAN [Concomitant]
     Dosage: UNK
  4. LAMICTAL [Concomitant]
     Dosage: UNK
  5. RITALIN [Concomitant]
     Dosage: UNK
  6. ZYPREXA [Concomitant]
     Dosage: UNK
  7. EFFEXOR [Concomitant]
     Dosage: UNK
  8. KLONOPIN [Concomitant]
     Dosage: UNK

REACTIONS (3)
  - EMOTIONAL DISORDER [None]
  - STRESS [None]
  - DRUG INEFFECTIVE [None]
